FAERS Safety Report 6481631-4 (Version None)
Quarter: 2009Q4

REPORT INFORMATION
  Report Type: 
  Country: None (occurrence: None)
  Receive Date: 20091208
  Receipt Date: 20090319
  Transmission Date: 20100525
  Serious: No
  Sender: FDA-Public Use
  Company Number: US-AMGEN-KDL339246

PATIENT
  Sex: Female

DRUGS (3)
  1. ENBREL [Suspect]
     Indication: RHEUMATOID ARTHRITIS
     Route: 058
     Dates: start: 20070402
  2. PLAQUENIL [Concomitant]
     Route: 048
  3. ARAVA [Concomitant]
     Route: 048

REACTIONS (1)
  - LUMBAR SPINAL STENOSIS [None]
